FAERS Safety Report 14406492 (Version 2)
Quarter: 2018Q2

REPORT INFORMATION
  Report Type: Not Available
  Country: US (occurrence: US)
  Receive Date: 20180118
  Receipt Date: 20180419
  Transmission Date: 20180711
  Serious: No
  Sender: FDA-Public Use
  Company Number: US-NEUROCRINE BIOSCIENCES INC.-2017NBI01977

PATIENT
  Age: 70 Year
  Sex: Male

DRUGS (3)
  1. INGREZZA [Suspect]
     Active Substance: VALBENAZINE
     Indication: DYSKINESIA
     Route: 048
     Dates: start: 201709, end: 20171102
  2. INGREZZA [Suspect]
     Active Substance: VALBENAZINE
     Route: 048
     Dates: start: 20171103
  3. CLONAZEPAM. [Concomitant]
     Active Substance: CLONAZEPAM

REACTIONS (2)
  - Somnolence [Unknown]
  - Respiratory rate decreased [Unknown]

NARRATIVE: CASE EVENT DATE: 20171102
